FAERS Safety Report 17833335 (Version 1)
Quarter: 2020Q2

REPORT INFORMATION
  Report Type: Spontaneous
  Country: BR (occurrence: BR)
  Receive Date: 20200528
  Receipt Date: 20200528
  Transmission Date: 20200714
  Serious: Yes (Hospitalization, Other)
  Sender: FDA-Public Use
  Company Number: BR-SA-2020SA133619

PATIENT
  Age: 30 Year
  Sex: Female

DRUGS (1)
  1. CLEXANE [Suspect]
     Active Substance: ENOXAPARIN SODIUM
     Dosage: UNK

REACTIONS (10)
  - Pruritus [Unknown]
  - Feeling abnormal [Unknown]
  - Haemorrhage [Unknown]
  - Social problem [Unknown]
  - Keloid scar [Unknown]
  - Hypersensitivity [Unknown]
  - Infarction [Unknown]
  - Mental disorder [Unknown]
  - Emotional disorder [Unknown]
  - Skin exfoliation [Unknown]

NARRATIVE: CASE EVENT DATE: 20190525
